FAERS Safety Report 8868996 (Version 2)
Quarter: 2013Q1

REPORT INFORMATION
  Report Type: Spontaneous
  Country: GB (occurrence: None)
  Receive Date: 20121022
  Receipt Date: 20130122
  Transmission Date: 20140127
  Serious: Yes (Death, Hospitalization)
  Sender: FDA-Public Use
  Company Number: DSA_60227_2012

PATIENT
  Age: 68 Year
  Sex: Male

DRUGS (9)
  1. ASPIRIN [Concomitant]
  2. BACLOFEN [Concomitant]
  3. DESLORATADINE [Concomitant]
  4. FOLIC ACID [Suspect]
  5. LISINOPRIL [Concomitant]
  6. PAROXETINE [Concomitant]
  7. SIMVASTATIN [Concomitant]
  8. VESICARE [Concomitant]
  9. DILTIAZEM HYDROCHLORIDE [Suspect]
     Indication: HYPERTENSION
     Route: 048

REACTIONS (7)
  - Purpura [None]
  - Vasculitis [None]
  - Stevens-Johnson syndrome [None]
  - Erythema multiforme [None]
  - Dehydration [None]
  - Multi-organ failure [None]
  - Rash pustular [None]
